FAERS Safety Report 13207408 (Version 2)
Quarter: 2018Q4

REPORT INFORMATION
  Report Type: Spontaneous
  Country: US (occurrence: US)
  Receive Date: 20170209
  Receipt Date: 20181005
  Transmission Date: 20190204
  Serious: No
  Sender: FDA-Public Use
  Company Number: US-SA-2017SA002139

PATIENT
  Sex: Female

DRUGS (19)
  1. ZANTAC [Concomitant]
     Active Substance: RANITIDINE HYDROCHLORIDE
     Dosage: 50 MG,UNK
  2. LANSOPRAZOLE. [Concomitant]
     Active Substance: LANSOPRAZOLE
     Dosage: 30 MG,UNK
  3. NITROFURANTOIN. [Concomitant]
     Active Substance: NITROFURANTOIN
     Dosage: 100 MG,UNK
  4. PRALUENT [Suspect]
     Active Substance: ALIROCUMAB
     Indication: CEREBRAL INFARCTION
     Dosage: 75 MG,QOW
     Route: 058
     Dates: start: 20160412
  5. DICYCLOVERINE [Concomitant]
     Active Substance: DICYCLOMINE HYDROCHLORIDE
     Dosage: 10 MG,UNK
  6. LANTUS [Concomitant]
     Active Substance: INSULIN GLARGINE
     Dosage: 100 ML,UNK
  7. CARVEDILOL. [Concomitant]
     Active Substance: CARVEDILOL
     Dosage: 6.25 MG,UNK
  8. GABAPENTIN. [Concomitant]
     Active Substance: GABAPENTIN
     Dosage: 100 MG,UNK
  9. GLUCOSAMINE [Concomitant]
     Active Substance: GLUCOSAMINE
  10. TRAMADOL HCL [Concomitant]
     Active Substance: TRAMADOL HYDROCHLORIDE
  11. ISOSORBIDE MONONITRATE. [Concomitant]
     Active Substance: ISOSORBIDE MONONITRATE
     Dosage: 30 MG,UNK
  12. NOVOLOG [Concomitant]
     Active Substance: INSULIN ASPART
     Dosage: 100 ML,UNK
  13. ELIQUIS [Concomitant]
     Active Substance: APIXABAN
  14. RANEXA [Concomitant]
     Active Substance: RANOLAZINE
  15. PRALUENT [Suspect]
     Active Substance: ALIROCUMAB
     Dosage: 150 UNK
     Route: 058
     Dates: start: 20161014
  16. CLOPIDOGREL [Concomitant]
     Active Substance: CLOPIDOGREL BISULFATE
     Dosage: 75 MG,UNK
  17. CARVEDILOL. [Concomitant]
     Active Substance: CARVEDILOL
     Dosage: 3.225 MG,UNK
  18. ONDANSETRON [Concomitant]
     Active Substance: ONDANSETRON
     Dosage: 1 MG,UNK
  19. POLYETHYLENE GLYCOL 3350 LAXATIVE [Concomitant]

REACTIONS (1)
  - Urinary tract infection [Not Recovered/Not Resolved]
